FAERS Safety Report 14687156 (Version 1)
Quarter: 2018Q1

REPORT INFORMATION
  Report Type: Report from Study
  Country: US (occurrence: US)
  Receive Date: 20180328
  Receipt Date: 20180328
  Transmission Date: 20180509
  Serious: Yes (Hospitalization)
  Sender: FDA-Public Use
  Company Number: US-AMGEN-USASL2018028075

PATIENT
  Age: 83 Year
  Sex: Male
  Weight: 74.83 kg

DRUGS (1)
  1. REPATHA [Suspect]
     Active Substance: EVOLOCUMAB
     Indication: TYPE IIA HYPERLIPIDAEMIA
     Dosage: 140 MG, Q2WK
     Route: 058
     Dates: start: 20180221, end: 20180221

REACTIONS (11)
  - Chills [Recovered/Resolved]
  - Lacrimation increased [Recovered/Resolved]
  - Pain [Recovering/Resolving]
  - Insomnia [Recovering/Resolving]
  - Nasal congestion [Recovered/Resolved]
  - Pyrexia [Recovered/Resolved]
  - Dyspnoea exertional [Recovered/Resolved]
  - Headache [Recovering/Resolving]
  - Cough [Recovered/Resolved]
  - Hyperhidrosis [Recovering/Resolving]
  - Urine flow decreased [Recovering/Resolving]

NARRATIVE: CASE EVENT DATE: 201802
